FAERS Safety Report 7381369-5 (Version None)
Quarter: 2011Q1

REPORT INFORMATION
  Report Type: 
  Country: None (occurrence: None)
  Receive Date: 20110321
  Receipt Date: 20110311
  Transmission Date: 20110831
  Serious: Yes (Death)
  Sender: FDA-Public Use
  Company Number: 1000019275

PATIENT
  Age: 88 Year
  Sex: Male

DRUGS (1)
  1. NEBIVOLOL (NEBIVOLOL HYDROCHLORIDE) [Suspect]

REACTIONS (1)
  - HOSPITALISATION [None]
